FAERS Safety Report 18305055 (Version 1)
Quarter: 2020Q3

REPORT INFORMATION
  Report Type: Report from Study
  Country: US (occurrence: US)
  Receive Date: 20200923
  Receipt Date: 20200923
  Transmission Date: 20201103
  Serious: Yes (Hospitalization, Other)
  Sender: FDA-Public Use
  Company Number: US-JNJFOC-A-US2020-207979

PATIENT
  Age: 39 Year
  Sex: Female
  Weight: 80.73 kg

DRUGS (5)
  1. OPSUMIT [Suspect]
     Active Substance: MACITENTAN
     Indication: PULMONARY ARTERIAL HYPERTENSION
     Dosage: 10 MG, QD
     Route: 048
  2. VELETRI [Suspect]
     Active Substance: EPOPROSTENOL
     Dosage: 15.5 NG/KG, PER MIN
     Route: 042
  3. ADEMPAS [Concomitant]
     Active Substance: RIOCIGUAT
  4. VELETRI [Suspect]
     Active Substance: EPOPROSTENOL
     Indication: PULMONARY ARTERIAL HYPERTENSION
     Dosage: 22.5 NG/KG, PER MIN
     Route: 042
  5. VELETRI [Suspect]
     Active Substance: EPOPROSTENOL
     Dosage: 16 NG/KG, PER MIN
     Route: 042

REACTIONS (11)
  - Infusion site discolouration [Unknown]
  - Infusion site rash [Unknown]
  - Tachycardia [Unknown]
  - Dyspnoea exertional [Unknown]
  - Amenorrhoea [Unknown]
  - Joint stiffness [Unknown]
  - Device related infection [Unknown]
  - Syncope [Unknown]
  - Infusion site pain [Unknown]
  - Loss of consciousness [Recovered/Resolved]
  - Infusion site erythema [Unknown]

NARRATIVE: CASE EVENT DATE: 20200819
